FAERS Safety Report 5195046-2 (Version None)
Quarter: 2006Q4

REPORT INFORMATION
  Report Type: 
  Country: None (occurrence: None)
  Receive Date: 20061229
  Receipt Date: 20061221
  Transmission Date: 20070319
  Serious: Yes (Other)
  Sender: FDA-Public Use
  Company Number: GB-JNJFOC-20061206695

PATIENT
  Age: 11 Year
  Sex: Female
  Weight: 31.8 kg

DRUGS (3)
  1. IBUPROFEN [Suspect]
     Indication: DRUG USE FOR UNKNOWN INDICATION
  2. PIROXICAM [Suspect]
     Indication: ARTHRALGIA
  3. PIROXICAM [Suspect]
     Indication: CHEST PAIN

REACTIONS (2)
  - EYE PAIN [None]
  - VISION BLURRED [None]
